FAERS Safety Report 22257381 (Version 1)
Quarter: 2023Q2

REPORT INFORMATION
  Report Type: Other
  Country: FR (occurrence: FR)
  Receive Date: 20230427
  Receipt Date: 20230427
  Transmission Date: 20230721
  Serious: Yes (Hospitalization, Other)
  Sender: FDA-Public Use
  Company Number: None

PATIENT

DRUGS (3)
  1. THIOGUANINE ANHYDROUS [Suspect]
     Active Substance: THIOGUANINE ANHYDROUS
     Indication: Precursor T-lymphoblastic lymphoma/leukaemia
     Dosage: 80 MG DU LUNDI AU SAMEDI, 40 MG LE DIMANCHE
     Route: 048
     Dates: start: 20230228, end: 20230313
  2. METHOTREXATE (METHOTREXATE SODIUM) [Suspect]
     Active Substance: METHOTREXATE SODIUM
     Indication: Precursor T-lymphoblastic lymphoma/leukaemia
     Dosage: 15 MG, 1 DOSAGE TOTAL
     Route: 037
     Dates: start: 20230315, end: 20230315
  3. CYTARABINE [Suspect]
     Active Substance: CYTARABINE
     Indication: Precursor T-lymphoblastic lymphoma/leukaemia
     Dosage: 88 MG, 1 DOSAGE TOTAL
     Route: 042
     Dates: start: 20230325, end: 20230325

REACTIONS (2)
  - Leukoencephalopathy [Not Recovered/Not Resolved]
  - Motor dysfunction [Recovered/Resolved]

NARRATIVE: CASE EVENT DATE: 20230326
